FAERS Safety Report 9746537 (Version 1)
Quarter: 2013Q4

REPORT INFORMATION
  Report Type: Report from Study
  Country: BR (occurrence: BR)
  Receive Date: 20131211
  Receipt Date: 20131211
  Transmission Date: 20140711
  Serious: Yes (Other)
  Sender: FDA-Public Use
  Company Number: PHHY2013BR143932

PATIENT
  Sex: Female
  Weight: 74 kg

DRUGS (5)
  1. GILENYA [Suspect]
     Indication: MULTIPLE SCLEROSIS
     Dosage: 0.5 MG, QD
     Route: 048
     Dates: start: 20131018
  2. TOPIRAMATE [Concomitant]
     Dosage: UNK UKN, UNK
  3. PANTOPRAZOLE [Concomitant]
     Dosage: UNK UKN, UNK
  4. IRON [Concomitant]
     Dosage: UNK UKN, UNK
  5. MINERALS NOS [Concomitant]
     Dosage: UNK UKN, UNK

REACTIONS (6)
  - Loss of consciousness [Recovering/Resolving]
  - Road traffic accident [Recovering/Resolving]
  - Blood pressure decreased [Recovering/Resolving]
  - Blood pressure fluctuation [Recovering/Resolving]
  - Somnolence [Recovering/Resolving]
  - Headache [Recovering/Resolving]
